FAERS Safety Report 9723767 (Version 2)
Quarter: 2013Q4

REPORT INFORMATION
  Report Type: Spontaneous
  Country: US (occurrence: US)
  Receive Date: 20131202
  Receipt Date: 20131213
  Transmission Date: 20140711
  Serious: No
  Sender: FDA-Public Use
  Company Number: US-009507513-1312USA000595

PATIENT
  Age: 76 Year
  Sex: Female
  Weight: 65.76 kg

DRUGS (1)
  1. OXYTROL FOR WOMEN [Suspect]
     Indication: URINARY INCONTINENCE
     Dosage: 1 DF, Q4D
     Route: 062
     Dates: start: 20131105, end: 20131111

REACTIONS (3)
  - Application site discolouration [Recovering/Resolving]
  - Application site pruritus [Recovering/Resolving]
  - Unevaluable event [Recovering/Resolving]
